FAERS Safety Report 12768193 (Version 7)
Quarter: 2017Q3

REPORT INFORMATION
  Report Type: Report from Study
  Country: CA (occurrence: CA)
  Receive Date: 20160921
  Receipt Date: 20170912
  Transmission Date: 20171127
  Serious: Yes (Hospitalization, Other)
  Sender: FDA-Public Use
  Company Number: CA-REGENERON PHARMACEUTICALS, INC.-2016-21721

PATIENT

DRUGS (18)
  1. LINEZOLID. [Concomitant]
     Active Substance: LINEZOLID
     Indication: INFECTION PROPHYLAXIS
     Dosage: 1200 MG, QD
     Dates: start: 20170127, end: 20170224
  2. LORAZEPAM. [Concomitant]
     Active Substance: LORAZEPAM
     Indication: PRODUCT USED FOR UNKNOWN INDICATION
     Dosage: 1 MG, QD
     Dates: start: 20170325
  3. ACETAMINOPHEN. [Concomitant]
     Active Substance: ACETAMINOPHEN
     Indication: PAIN
     Dosage: 2600 MG, QD
     Dates: start: 201703
  4. VITAMIN B12 [Concomitant]
     Active Substance: CYANOCOBALAMIN
     Indication: PROPHYLAXIS
     Dosage: 1200 ?G, QD
     Dates: start: 20170325
  5. EYLEA [Suspect]
     Active Substance: AFLIBERCEPT
     Dosage: 50 ?L, LEFT EYE
     Route: 031
     Dates: start: 20170606, end: 20170606
  6. SODIUM POLYSTYRENE SULFONATE. [Concomitant]
     Active Substance: SODIUM POLYSTYRENE SULFONATE
     Indication: PRODUCT USED FOR UNKNOWN INDICATION
     Dosage: 30000 MG/ML, QD
     Dates: start: 20170326, end: 20170328
  7. VITALUX PLUS                       /06048701/ [Concomitant]
     Indication: NEOVASCULAR AGE-RELATED MACULAR DEGENERATION
     Dosage: 1 CAPSULE TOTAL DAILY DOSE
     Dates: start: 2016
  8. RESTORIL [Concomitant]
     Active Substance: TEMAZEPAM
     Indication: PRODUCT USED FOR UNKNOWN INDICATION
     Dosage: 15 MG, QD
     Dates: start: 20170325
  9. AMLODIPINE [Concomitant]
     Active Substance: AMLODIPINE BESYLATE
     Indication: PRODUCT USED FOR UNKNOWN INDICATION
     Dosage: 2.5 MG, QD
     Dates: start: 201703
  10. LANSOPRAZOLE. [Concomitant]
     Active Substance: LANSOPRAZOLE
     Indication: PRODUCT USED FOR UNKNOWN INDICATION
     Dosage: 60 MG, QD
     Dates: start: 201703
  11. METRONIDAZOLE. [Concomitant]
     Active Substance: METRONIDAZOLE
     Indication: INFECTION PROPHYLAXIS
     Dosage: 1550 MG, QD
     Dates: start: 20170127, end: 20170224
  12. EYLEA [Suspect]
     Active Substance: AFLIBERCEPT
     Indication: NEOVASCULAR AGE-RELATED MACULAR DEGENERATION
     Dosage: 50 ?L, RIGHT EYE (STUDY EYE)
     Dates: start: 20160614
  13. LOMOTIL [Concomitant]
     Active Substance: ATROPINE SULFATE\DIPHENOXYLATE HYDROCHLORIDE
     Indication: DIARRHOEA
     Dosage: 7.5 MG, QD
     Dates: start: 20170325
  14. EYLEA [Suspect]
     Active Substance: AFLIBERCEPT
     Dosage: 50 ?L, LEFT EYE
     Dates: start: 20160614
  15. EYLEA [Suspect]
     Active Substance: AFLIBERCEPT
     Dosage: 50 ?L, RIGHT EYE
     Route: 031
     Dates: start: 20170606, end: 20170606
  16. VITALUX PLUS                       /06048701/ [Concomitant]
     Indication: DIABETIC RETINAL OEDEMA
     Dosage: UNK
  17. LOPERAMIDE [Concomitant]
     Active Substance: LOPERAMIDE
     Indication: DIARRHOEA
     Dosage: 18 MG, QD
     Dates: start: 201703
  18. LEVETIRACETAM. [Concomitant]
     Active Substance: LEVETIRACETAM
     Indication: CONVULSION PROPHYLAXIS
     Dosage: 1000 MG, QD
     Dates: start: 20170325

REACTIONS (3)
  - Renal disorder [Recovered/Resolved]
  - Abdominal abscess [Recovered/Resolved]
  - Abdominal pain upper [Unknown]

NARRATIVE: CASE EVENT DATE: 20160906
